FAERS Safety Report 4899990-2 (Version None)
Quarter: 2006Q1

REPORT INFORMATION
  Report Type: 
  Country: None (occurrence: None)
  Receive Date: 20060201
  Receipt Date: 20060120
  Transmission Date: 20060701
  Serious: Yes (Other)
  Sender: FDA-Public Use
  Company Number: DEU-2006-0001940

PATIENT
  Age: 21 Year
  Sex: Male

DRUGS (1)
  1. SUBSTITOL RETARD KAPSELN      (MORPHINE SULFATE) CR [Suspect]
     Indication: DRUG ABUSER
     Dosage: SEE TEXT, INTRAVENOUS
     Route: 042
     Dates: start: 20060117

REACTIONS (5)
  - INTENTIONAL DRUG MISUSE [None]
  - LOSS OF CONSCIOUSNESS [None]
  - OVERDOSE [None]
  - PHARMACEUTICAL PRODUCT COMPLAINT [None]
  - POOR QUALITY DRUG ADMINISTERED [None]
